FAERS Safety Report 8176374-5 (Version None)
Quarter: 2012Q1

REPORT INFORMATION
  Report Type: 
  Country: None (occurrence: None)
  Receive Date: 20120301
  Receipt Date: 20120227
  Transmission Date: 20120608
  Serious: Yes (Other)
  Sender: FDA-Public Use
  Company Number: US-PFIZER INC-2012002339

PATIENT
  Sex: Female

DRUGS (13)
  1. FLEXERIL [Concomitant]
     Dosage: UNK
  2. FLUTICASONE [Concomitant]
     Dosage: UNK
  3. HYDROCHLOROTHIAZIDE [Concomitant]
     Dosage: 25 MG, UNK
  4. VITAMIN D [Concomitant]
     Dosage: UNK
  5. OMEPRAZOLE [Concomitant]
     Dosage: UNK
  6. TRAMADOL [Concomitant]
     Dosage: UNK
  7. BUPROPION [Concomitant]
     Dosage: UNK
  8. SINGULAIR [Concomitant]
     Dosage: UNK
  9. ADVAIR DISKUS 100/50 [Concomitant]
     Dosage: UNK
  10. LYRICA [Suspect]
     Dosage: 50 MG, 2X/DAY
     Route: 048
  11. CLONAZEPAM [Concomitant]
     Dosage: 1 MG, UNK
  12. SERTRALINE [Concomitant]
     Dosage: UNK
  13. LYRICA [Suspect]
     Dosage: 25 MG, 2X/DAY
     Route: 048

REACTIONS (4)
  - DISTURBANCE IN ATTENTION [None]
  - IMPAIRED DRIVING ABILITY [None]
  - BALANCE DISORDER [None]
  - DIZZINESS [None]
